FAERS Safety Report 23752954 (Version 1)
Quarter: 2024Q2

REPORT INFORMATION
  Report Type: Spontaneous
  Country: CN (occurrence: CN)
  Receive Date: 20240417
  Receipt Date: 20240417
  Transmission Date: 20240716
  Serious: Yes (Life-Threatening, Hospitalization, Disabling)
  Sender: FDA-Public Use
  Company Number: CN-GE HEALTHCARE-2024CSU003633

PATIENT
  Age: 51 Year
  Sex: Female

DRUGS (3)
  1. VISIPAQUE [Suspect]
     Active Substance: IODIXANOL
     Indication: Angiogram cerebral
     Dosage: UNK UNK, TOTAL
     Route: 013
     Dates: start: 20211230, end: 20211230
  2. NIFEDIPINE [Concomitant]
     Active Substance: NIFEDIPINE
     Indication: Hypertension
     Dosage: UNK
  3. IRBESARTAN [Concomitant]
     Active Substance: IRBESARTAN
     Indication: Hypertension
     Dosage: UNK

REACTIONS (4)
  - Contrast encephalopathy [Recovered/Resolved with Sequelae]
  - Respiratory failure [Unknown]
  - Brain stem syndrome [Unknown]
  - Paraplegia [Not Recovered/Not Resolved]

NARRATIVE: CASE EVENT DATE: 20211230
